FAERS Safety Report 12927269 (Version 1)
Quarter: 2016Q4

REPORT INFORMATION
  Report Type: Spontaneous
  Country: US (occurrence: US)
  Receive Date: 20161109
  Receipt Date: 20161109
  Transmission Date: 20170207
  Serious: No
  Sender: FDA-Public Use
  Company Number: US-ALLERGAN-1648704

PATIENT
  Sex: Female

DRUGS (1)
  1. INFED [Suspect]
     Active Substance: IRON DEXTRAN
     Indication: IRON DEFICIENCY ANAEMIA
     Dosage: 2000 MG, ONE TIME INFUSION
     Route: 042
     Dates: start: 20151028, end: 20151028

REACTIONS (1)
  - Incorrect drug administration rate [Unknown]

NARRATIVE: CASE EVENT DATE: 20151028
